FAERS Safety Report 4502661-5 (Version None)
Quarter: 2004Q3

REPORT INFORMATION
  Report Type: 
  Country: None (occurrence: None)
  Receive Date: 20040928
  Receipt Date: 20040628
  Transmission Date: 20050211
  Serious: No
  Sender: FDA-Public Use
  Company Number: 04P-163-0263048-00

PATIENT
  Age: 64 Year
  Sex: Female

DRUGS (6)
  1. HUMIRA [Suspect]
     Indication: DERMATOMYOSITIS
     Dosage: 40 MG, 1 IN 1 WK, SUBCUTANEOUS
     Route: 058
     Dates: start: 20040514
  2. HUMIRA [Suspect]
     Indication: RHEUMATOID ARTHRITIS
     Dosage: 40 MG, 1 IN 1 WK, SUBCUTANEOUS
     Route: 058
     Dates: start: 20040514
  3. PAROXETINE HYDROCHLORIDE [Concomitant]
  4. MULTIVITAMIN [Concomitant]
  5. PREDNISONE [Concomitant]
  6. ROFECOXIB [Concomitant]

REACTIONS (3)
  - ALOPECIA [None]
  - CYSTITIS [None]
  - NAUSEA [None]
